FAERS Safety Report 4291286-5 (Version None)
Quarter: 2004Q1

REPORT INFORMATION
  Report Type: 
  Country: None (occurrence: None)
  Receive Date: 20040211
  Receipt Date: 20031203
  Transmission Date: 20041129
  Serious: No
  Sender: FDA-Public Use
  Company Number: US-GLAXOSMITHKLINE-A0441738A

PATIENT
  Age: 41 Year
  Sex: Female

DRUGS (4)
  1. PAXIL [Suspect]
     Indication: DEPRESSION
     Route: 048
     Dates: start: 20010301
  2. XANAX [Concomitant]
  3. VICODIN [Concomitant]
  4. FIORINAL W/CODEINE [Concomitant]

REACTIONS (1)
  - DELUSION [None]
